FAERS Safety Report 24687095 (Version 1)
Quarter: 2024Q4

REPORT INFORMATION
  Report Type: Spontaneous
  Country: CO (occurrence: CO)
  Receive Date: 20241202
  Receipt Date: 20241202
  Transmission Date: 20250115
  Serious: Yes (Other)
  Sender: BIOMARIN
  Company Number: CO-BIOMARINAP-CO-2024-162126

PATIENT

DRUGS (1)
  1. VIMIZIM [Suspect]
     Active Substance: ELOSULFASE ALFA
     Indication: Mucopolysaccharidosis IV
     Dosage: UNK, QW
     Route: 042
     Dates: start: 20221223

REACTIONS (1)
  - Knee operation [Recovering/Resolving]

NARRATIVE: CASE EVENT DATE: 20241121
